FAERS Safety Report 15674615 (Version 1)
Quarter: 2018Q4

REPORT INFORMATION
  Report Type: Spontaneous
  Country: US (occurrence: US)
  Receive Date: 20181130
  Receipt Date: 20181130
  Transmission Date: 20190205
  Serious: No
  Sender: FDA-Public Use
  Company Number: US-009507513-1811USA012329

PATIENT
  Age: 40 Year
  Sex: Male

DRUGS (1)
  1. CANCIDAS [Suspect]
     Active Substance: CASPOFUNGIN ACETATE
     Indication: PROPHYLAXIS
     Dosage: UNK

REACTIONS (1)
  - Product use in unapproved indication [Unknown]
